FAERS Safety Report 20199771 (Version 1)
Quarter: 2021Q4

REPORT INFORMATION
  Report Type: Spontaneous
  Country: US (occurrence: US)
  Receive Date: 20211217
  Receipt Date: 20211217
  Transmission Date: 20220303
  Serious: Yes (Other)
  Sender: FDA-Public Use
  Company Number: US-ORG100016242-2021000552

PATIENT
  Sex: Female

DRUGS (2)
  1. EXPAREL [Suspect]
     Active Substance: BUPIVACAINE
     Dosage: 10 ML
     Route: 065
  2. ROPIVACAINE [Suspect]
     Active Substance: ROPIVACAINE
     Dosage: DOSE NOT PROVIDED
     Route: 052

REACTIONS (3)
  - Local anaesthetic systemic toxicity [Unknown]
  - Off label use [Unknown]
  - Labelled drug-drug interaction medication error [Unknown]
